FAERS Safety Report 6148745-X (Version None)
Quarter: 2009Q2

REPORT INFORMATION
  Report Type: 
  Country: None (occurrence: None)
  Receive Date: 20090408
  Receipt Date: 20090406
  Transmission Date: 20091009
  Serious: No
  Sender: FDA-Public Use
  Company Number: US-B.I. PHARMACEUTICALS,INC./RIDGEFIELD-2009-BP-04311BP

PATIENT
  Sex: Female

DRUGS (6)
  1. SPIRIVA [Suspect]
     Indication: CHRONIC OBSTRUCTIVE PULMONARY DISEASE
     Dosage: 18MCG
     Route: 048
     Dates: start: 20081201
  2. ALBUTEROL [Suspect]
     Indication: CHRONIC OBSTRUCTIVE PULMONARY DISEASE
     Dosage: PRN
     Route: 055
     Dates: start: 20090402
  3. IPRATROPIUM BROMIDE [Suspect]
     Indication: CHRONIC OBSTRUCTIVE PULMONARY DISEASE
     Route: 055
     Dates: start: 20090402
  4. HIGH BLOOD PRESSURE MED [Concomitant]
     Indication: HYPERTENSION
     Dates: start: 20080401
  5. HIGH CHOLESTEROL MED [Concomitant]
     Indication: BLOOD CHOLESTEROL INCREASED
     Dates: start: 20080401
  6. DIURETIC [Concomitant]
     Indication: HYPERTENSION
     Dates: start: 20080401

REACTIONS (3)
  - CHEST DISCOMFORT [None]
  - FEELING ABNORMAL [None]
  - NERVOUSNESS [None]
